FAERS Safety Report 19620281 (Version 2)
Quarter: 2021Q4

REPORT INFORMATION
  Report Type: Spontaneous
  Country: ES (occurrence: ES)
  Receive Date: 20210728
  Receipt Date: 20211117
  Transmission Date: 20220303
  Serious: Yes (Other)
  Sender: FDA-Public Use
  Company Number: ES-ORGANON-O2105ESP002403

PATIENT
  Sex: Male

DRUGS (2)
  1. RIVOTRIL [Suspect]
     Active Substance: CLONAZEPAM
     Indication: Product used for unknown indication
     Route: 065
  2. MIANSERIN HYDROCHLORIDE [Suspect]
     Active Substance: MIANSERIN HYDROCHLORIDE
     Indication: Depression
     Route: 048
     Dates: start: 2006

REACTIONS (12)
  - Syncope [Unknown]
  - Wisdom teeth removal [Unknown]
  - Prostatic operation [Unknown]
  - Feeling abnormal [Unknown]
  - Therapeutic product effect incomplete [Unknown]
  - Inguinal hernia repair [Unknown]
  - Mesenteric panniculitis [Unknown]
  - Somnolence [Recovered/Resolved]
  - Gastrointestinal candidiasis [Unknown]
  - Weight decreased [Unknown]
  - Dysbiosis [Unknown]
  - Bradycardia [Recovered/Resolved]

NARRATIVE: CASE EVENT DATE: 20180101
